FAERS Safety Report 23828116 (Version 3)
Quarter: 2024Q3

REPORT INFORMATION
  Report Type: Report from Study
  Country: US (occurrence: US)
  Receive Date: 20240507
  Receipt Date: 20240730
  Transmission Date: 20241017
  Serious: Yes (Hospitalization, Other)
  Sender: ABBVIE
  Company Number: US-ABBVIE-5708160

PATIENT
  Sex: Female

DRUGS (2)
  1. HUMIRA [Suspect]
     Active Substance: ADALIMUMAB
     Indication: Rheumatoid arthritis
     Dosage: FORM STRENGTH: 40 MILLIGRAM?CITRATE FREE
     Route: 058
     Dates: start: 20180627
  2. HUMIRA [Suspect]
     Active Substance: ADALIMUMAB
     Dosage: FORM STRENGTH: 40 MILLIGRAM?CITRATE FREE?LAST ADMIN DATE- 2018
     Route: 058
     Dates: start: 20180524

REACTIONS (6)
  - Blood pressure fluctuation [Not Recovered/Not Resolved]
  - Cataract [Unknown]
  - Cardiac failure [Unknown]
  - Pneumonia [Unknown]
  - Fatigue [Unknown]
  - Fatigue [Unknown]
